FAERS Safety Report 4806626-5 (Version None)
Quarter: 2005Q4

REPORT INFORMATION
  Report Type: 
  Country: None (occurrence: None)
  Receive Date: 20051019
  Receipt Date: 20051005
  Transmission Date: 20060501
  Serious: Yes (Hospitalization)
  Sender: FDA-Public Use
  Company Number: USA0509108378

PATIENT
  Age: 51 Year
  Sex: Male

DRUGS (1)
  1. HUMULIN L [Suspect]
     Dosage: 15 U DAY
     Dates: start: 19550101

REACTIONS (6)
  - BLOOD GLUCOSE INCREASED [None]
  - DRUG INEFFECTIVE [None]
  - LOWER LIMB FRACTURE [None]
  - PHARMACEUTICAL PRODUCT COMPLAINT [None]
  - SPORTS INJURY [None]
  - TREATMENT NONCOMPLIANCE [None]
